FAERS Safety Report 8409527-9 (Version None)
Quarter: 2012Q2

REPORT INFORMATION
  Report Type: 
  Country: None (occurrence: None)
  Receive Date: 20120529
  Receipt Date: 20100325
  Transmission Date: 20120825
  Serious: Yes (Other)
  Sender: FDA-Public Use
  Company Number: JP-2011-12451

PATIENT
  Age: 73 Year
  Sex: Female

DRUGS (11)
  1. ALINAMKIN F (FURSULTIAMINE HYDROCHLORIDE) [Concomitant]
  2. EPADEL (EICOSAPENTAENOIC ACID) [Concomitant]
  3. PLETAL [Suspect]
     Indication: PERIPHERAL ARTERIAL OCCLUSIVE DISEASE
     Dosage: 50 MG, BID, ORAL
     Route: 048
     Dates: start: 20080520, end: 20080702
  4. EPHEDRA TEAS (EPHEDRA SPP) [Concomitant]
  5. ASPIRIN [Concomitant]
  6. ASPARA-CA (ASPARTATE SODIUM) [Concomitant]
  7. SHAKUYAKU-KANSO-TO (SHAKUYAKU-KANZO-TO) [Concomitant]
  8. METHYCOBAL (MECOBALAMIN) [Concomitant]
  9. LEVOTHYROXINE SODIUM [Concomitant]
  10. ZOLPIDEM TARTRATE [Concomitant]
  11. LIPITOR [Concomitant]

REACTIONS (9)
  - BLOOD GLUCOSE INCREASED [None]
  - RASH PRURITIC [None]
  - GLYCOSYLATED HAEMOGLOBIN INCREASED [None]
  - HYPOTHYROIDISM [None]
  - PHOTOSENSITIVITY REACTION [None]
  - WEIGHT INCREASED [None]
  - PAIN IN EXTREMITY [None]
  - PERIPHERAL COLDNESS [None]
  - GLUCOSE TOLERANCE IMPAIRED [None]
